FAERS Safety Report 7990943-4 (Version None)
Quarter: 2011Q4

REPORT INFORMATION
  Report Type: 
  Country: None (occurrence: None)
  Receive Date: 20111219
  Receipt Date: 20111215
  Transmission Date: 20120403
  Serious: Yes (Hospitalization)
  Sender: FDA-Public Use
  Company Number: BE-ROCHE-1022681

PATIENT
  Age: 73 Year
  Sex: Male

DRUGS (3)
  1. AVASTIN [Suspect]
     Indication: COLORECTAL CANCER
     Dates: start: 20100101, end: 20100101
  2. ERBITUX [Suspect]
     Indication: COLORECTAL CANCER
  3. PROPOFOL [Suspect]
     Indication: COLORECTAL CANCER

REACTIONS (1)
  - CARDIAC ARREST [None]
